FAERS Safety Report 4534051-3 (Version None)
Quarter: 2004Q4

REPORT INFORMATION
  Report Type: 
  Country: None (occurrence: None)
  Receive Date: 20041220
  Receipt Date: 20041220
  Transmission Date: 20050328
  Serious: No
  Sender: FDA-Public Use
  Company Number: None

PATIENT
  Age: 67 Year
  Sex: Female
  Weight: 53.978 kg

DRUGS (11)
  1. AVELOX [Suspect]
     Indication: PNEUMONIA
     Dosage: 400MG   Q24HR   INTRAVENOUS
     Route: 042
     Dates: start: 20041214, end: 20041214
  2. CARDIZEM [Concomitant]
  3. DOPAMINE HCL [Concomitant]
  4. METOPROLOL [Concomitant]
  5. PROTONIX [Concomitant]
  6. ZOPENEX, [Concomitant]
  7. DIGOXIN [Concomitant]
  8. LASIX [Concomitant]
  9. ZOCOR [Concomitant]
  10. ARANESP [Concomitant]
  11. NEUMEGA [Concomitant]

REACTIONS (2)
  - ATRIAL FIBRILLATION [None]
  - TORSADE DE POINTES [None]
